FAERS Safety Report 9844392 (Version 1)
Quarter: 2014Q1

REPORT INFORMATION
  Report Type: Report from Study
  Country: FR (occurrence: FR)
  Receive Date: 20140127
  Receipt Date: 20140127
  Transmission Date: 20141002
  Serious: Yes (Hospitalization)
  Sender: FDA-Public Use
  Company Number: PHHO2014FR001194

PATIENT
  Sex: 0

DRUGS (21)
  1. EVEROLIMUS [Suspect]
     Indication: LIVER TRANSPLANT
     Dosage: 0.75 MG, QD
     Route: 048
     Dates: start: 20130919, end: 20130919
  2. EVEROLIMUS [Suspect]
     Dosage: 1.5 MG, QD
     Route: 048
     Dates: start: 20130920, end: 20130925
  3. EVEROLIMUS [Suspect]
     Dosage: 1.75 MG, QD
     Route: 048
     Dates: start: 20130926, end: 20130926
  4. EVEROLIMUS [Suspect]
     Dosage: 1.75 MG, QD
     Route: 048
     Dates: start: 20130926, end: 20130926
  5. EVEROLIMUS [Suspect]
     Dosage: 2 MG, QD
     Route: 048
     Dates: start: 20130927, end: 20131002
  6. EVEROLIMUS [Suspect]
     Dosage: 2.25 MG, QD
     Route: 048
     Dates: start: 20131003, end: 20131003
  7. EVEROLIMUS [Suspect]
     Dosage: 2.5 MG, QD
     Route: 048
     Dates: start: 20131004, end: 20131006
  8. EVEROLIMUS [Suspect]
     Dosage: 2.75 MG, QD
     Route: 048
     Dates: start: 20131007, end: 20131007
  9. EVEROLIMUS [Suspect]
     Dosage: 3 MG, QD
     Route: 048
     Dates: start: 20131008, end: 20131106
  10. EVEROLIMUS [Suspect]
     Dosage: 3.5 MG, QD
     Route: 048
     Dates: start: 20131107, end: 20131107
  11. EVEROLIMUS [Suspect]
     Dosage: 4 MG, QD
     Route: 048
     Dates: start: 20131108, end: 20131218
  12. EVEROLIMUS [Suspect]
     Dosage: 4.5 MG, QD
     Route: 048
     Dates: start: 20131219, end: 20131219
  13. EVEROLIMUS [Suspect]
     Dosage: 5 MG, QD
     Route: 048
     Dates: start: 20131220, end: 20140113
  14. EVEROLIMUS [Suspect]
     Dosage: 4.5 MG, QD
     Route: 048
     Dates: start: 20140114, end: 20140114
  15. EVEROLIMUS [Suspect]
     Dosage: 4 MG, QD
     Route: 048
     Dates: start: 20140115
  16. MYFORTIC [Suspect]
     Indication: LIVER TRANSPLANT
     Dosage: 1440 MG, BID
     Route: 048
     Dates: start: 20130827
  17. PROGRAF [Suspect]
     Indication: LIVER TRANSPLANT
     Dosage: UNK
     Dates: start: 20130827
  18. LEVOTHYROXINE [Concomitant]
     Indication: THYROIDITIS ACUTE
     Dosage: 125 MG, UNK
     Route: 048
     Dates: start: 20130824
  19. LEVOTHYROXINE [Concomitant]
     Indication: THYROIDITIS SUBACUTE
  20. LERCAN [Concomitant]
     Indication: HYPERTENSION
     Dosage: 20 MG, UNK
     Route: 048
     Dates: start: 20130824
  21. INVANZ [Concomitant]
     Indication: URINARY TRACT INFECTION
     Dosage: 1 G, UNK
     Route: 048
     Dates: start: 20140101

REACTIONS (4)
  - Cholestasis [Recovering/Resolving]
  - Cell death [Recovering/Resolving]
  - Asthenia [Recovering/Resolving]
  - Jaundice [Recovering/Resolving]
